FAERS Safety Report 12227216 (Version 4)
Quarter: 2019Q3

REPORT INFORMATION
  Report Type: Report from Study
  Country: FR (occurrence: FR)
  Receive Date: 20160331
  Receipt Date: 20190718
  Transmission Date: 20191004
  Serious: Yes (Death, Hospitalization, Other)
  Sender: FDA-Public Use
  Company Number: FR-GILEAD-2016-0205633

PATIENT
  Age: 78 Year
  Sex: Male

DRUGS (5)
  1. RIBAVIRIN. [Suspect]
     Active Substance: RIBAVIRIN
     Indication: VIRAL HEPATITIS CARRIER
     Dosage: 1200 MG, QD
     Route: 048
     Dates: start: 20151007, end: 20151230
  2. LEDIPASVIR/SOFOSBUVIR [Suspect]
     Active Substance: LEDIPASVIR\SOFOSBUVIR
     Indication: VIRAL HEPATITIS CARRIER
     Dosage: 1 DF, QD
     Route: 048
     Dates: start: 20151007, end: 20151230
  3. FUROSEMIDE. [Concomitant]
     Active Substance: FUROSEMIDE
     Dosage: 20 MG, QD
     Dates: start: 20130102
  4. BISOPROLOL [Concomitant]
     Active Substance: BISOPROLOL
     Dosage: 10 MG, QD
     Dates: start: 20120726
  5. VALSARTAN. [Concomitant]
     Active Substance: VALSARTAN
     Dosage: 20 MG, QD
     Dates: start: 20130102

REACTIONS (1)
  - Hepatocellular carcinoma [Fatal]

NARRATIVE: CASE EVENT DATE: 20160210
